FAERS Safety Report 7276010-6 (Version None)
Quarter: 2011Q1

REPORT INFORMATION
  Report Type: 
  Country: None (occurrence: None)
  Receive Date: 20110204
  Receipt Date: 20110125
  Transmission Date: 20110831
  Serious: Yes (Life-Threatening, Hospitalization)
  Sender: FDA-Public Use
  Company Number: B0695806A

PATIENT
  Sex: Female

DRUGS (1)
  1. ARIXTRA [Suspect]
     Dosage: 7.5MG PER DAY
     Route: 058
     Dates: start: 20101020, end: 20101022

REACTIONS (5)
  - OFF LABEL USE [None]
  - HYPOVOLAEMIC SHOCK [None]
  - HAEMOGLOBIN DECREASED [None]
  - HYPOXIA [None]
  - HAEMOTHORAX [None]
